FAERS Safety Report 6495946-7 (Version None)
Quarter: 2009Q4

REPORT INFORMATION
  Report Type: 
  Country: None (occurrence: None)
  Receive Date: 20091214
  Receipt Date: 20090902
  Transmission Date: 20100525
  Serious: No
  Sender: FDA-Public Use
  Company Number: US-BRISTOL-MYERS SQUIBB COMPANY-14764864

PATIENT
  Age: 81 Year
  Sex: Female
  Weight: 82 kg

DRUGS (7)
  1. ABILIFY [Suspect]
     Indication: DEPRESSION
     Dosage: INITIALLY 2 MG THEN 5 MG; AGAIN REDUCED TO 2MG
     Dates: start: 20090101
  2. LEXAPRO [Concomitant]
  3. LEVOXYL [Concomitant]
  4. PLAVIX [Concomitant]
  5. AVASTIN [Concomitant]
  6. NAMENDA [Concomitant]
  7. AMITRIPTYLINE [Concomitant]

REACTIONS (4)
  - ASTHENIA [None]
  - BLOOD GLUCOSE INCREASED [None]
  - RESTLESSNESS [None]
  - WEIGHT INCREASED [None]
